FAERS Safety Report 15082140 (Version 1)
Quarter: 2018Q2

REPORT INFORMATION
  Report Type: Spontaneous
  Country: US (occurrence: US)
  Receive Date: 20180628
  Receipt Date: 20180628
  Transmission Date: 20180711
  Serious: Yes (Life-Threatening, Other)
  Sender: FDA-Public Use
  Company Number: US-LUPIN HEALTHCARE (UK) LIMITED-2018-04609

PATIENT
  Age: 65 Year
  Sex: Female
  Weight: 74.83 kg

DRUGS (2)
  1. SERTRALINE HYDROCHLORIDE TABLETS USP, 100 MG [Suspect]
     Active Substance: SERTRALINE HYDROCHLORIDE
     Indication: STRESS
     Dosage: 100 MG, QD
     Route: 048
  2. CHERATUSSIN AC [Interacting]
     Active Substance: CODEINE PHOSPHATE\GUAIFENESIN
     Indication: COUGH
     Dosage: TOOK 4-5 TIMES WHILE ON THE SERTRALINE
     Route: 065
     Dates: start: 201802

REACTIONS (4)
  - Blood pressure decreased [Recovered/Resolved]
  - Drug interaction [Unknown]
  - Dizziness [Recovered/Resolved]
  - Feeling abnormal [Recovered/Resolved]

NARRATIVE: CASE EVENT DATE: 201802
